FAERS Safety Report 10214653 (Version 1)
Quarter: 2014Q2

REPORT INFORMATION
  Report Type: Spontaneous
  Country: US (occurrence: None)
  Receive Date: 20140602
  Receipt Date: 20140602
  Transmission Date: 20141212
  Serious: Yes (Death)
  Sender: FDA-Public Use
  Company Number: None

PATIENT
  Age: 62 Year
  Sex: Male

DRUGS (12)
  1. INSULIN GLARGINE [Suspect]
     Indication: BLOOD GLUCOSE INCREASED
     Route: 058
     Dates: start: 20130527, end: 20140529
  2. INSULIN REGULAR [Suspect]
     Indication: BLOOD GLUCOSE INCREASED
     Dosage: 3-12 UNITS?QID?SUBCUTANEOUS
     Route: 058
     Dates: start: 20130528, end: 20140529
  3. ACYCLOVIR [Concomitant]
  4. ALBUTEROL/IPRATROPIUM [Concomitant]
  5. AMIODARONE [Concomitant]
  6. DAPTOMYCIN [Concomitant]
  7. DILTIAZEM [Concomitant]
  8. EPOETIN ALFA [Concomitant]
  9. HYDROCORTISONE [Concomitant]
  10. MEROPENEM [Concomitant]
  11. PANTOPRAZOLE [Concomitant]
  12. WARFARIN [Concomitant]

REACTIONS (8)
  - Hypotension [None]
  - Dialysis [None]
  - Cardiac arrest [None]
  - Respiratory failure [None]
  - Pleural effusion [None]
  - Blood culture positive [None]
  - Cardiogenic shock [None]
  - Acute myocardial infarction [None]
